FAERS Safety Report 24864912 (Version 1)
Quarter: 2025Q1

REPORT INFORMATION
  Report Type: 
  Country: AU (occurrence: AU)
  Receive Date: 20250121
  Receipt Date: 20250121
  Transmission Date: 20250408
  Serious: Yes (Other)
  Sender: CELLTRION
  Company Number: AU-CELLTRION INC.-2025AU001129

PATIENT

DRUGS (1)
  1. INFLIXIMAB [Suspect]
     Active Substance: INFLIXIMAB
     Indication: Product used for unknown indication

REACTIONS (3)
  - Crohn^s disease [Unknown]
  - Drug level decreased [Unknown]
  - Off label use [Unknown]
